FAERS Safety Report 10062251 (Version 1)
Quarter: 2014Q2

REPORT INFORMATION
  Report Type: Spontaneous
  Country: US (occurrence: US)
  Receive Date: 20140407
  Receipt Date: 20140407
  Transmission Date: 20141212
  Serious: No
  Sender: FDA-Public Use
  Company Number: US-009507513-1403USA011469

PATIENT
  Age: 13 Year
  Sex: Female

DRUGS (2)
  1. CLARITIN REDITABS [Suspect]
     Indication: HYPERSENSITIVITY
     Dosage: 10 MG, QD
     Route: 048
     Dates: start: 20140226
  2. CLARITIN REDITABS [Suspect]
     Dosage: 10 MG, BID
     Route: 048
     Dates: start: 20140312

REACTIONS (1)
  - Overdose [Unknown]
